FAERS Safety Report 7930112-7 (Version None)
Quarter: 2011Q4

REPORT INFORMATION
  Report Type: 
  Country: None (occurrence: None)
  Receive Date: 20111121
  Receipt Date: 20111107
  Transmission Date: 20120403
  Serious: Yes (Hospitalization)
  Sender: FDA-Public Use
  Company Number: US-MYLANLABS-2011S1020132

PATIENT
  Age: 56 Year
  Sex: Male

DRUGS (6)
  1. LOTREL [Concomitant]
  2. METFORMIN HCL [Suspect]
     Route: 048
     Dates: start: 20110920, end: 20110920
  3. ANTIBIOTICS [Concomitant]
  4. SIMVASTATIN [Concomitant]
     Route: 048
     Dates: start: 20100101
  5. METFORMIN HCL [Suspect]
     Indication: TYPE 2 DIABETES MELLITUS
     Route: 048
     Dates: start: 20110913, end: 20110919
  6. AMLODIPINE BESYLATE [Concomitant]
     Indication: BLOOD PRESSURE INCREASED
     Route: 048

REACTIONS (4)
  - MOBILITY DECREASED [None]
  - HICCUPS [None]
  - SOCIAL AVOIDANT BEHAVIOUR [None]
  - COUGH [None]
